FAERS Safety Report 17562741 (Version 5)
Quarter: 2020Q2

REPORT INFORMATION
  Report Type: Report from Study
  Country: US (occurrence: US)
  Receive Date: 20200319
  Receipt Date: 20200511
  Transmission Date: 20200713
  Serious: Yes (Hospitalization)
  Sender: FDA-Public Use
  Company Number: US-ACTELION-A-US2020-200945

PATIENT
  Age: 79 Year
  Sex: Female
  Weight: 104.76 kg

DRUGS (2)
  1. REMODULIN [Concomitant]
     Active Substance: TREPROSTINIL
  2. OPSUMIT [Suspect]
     Active Substance: MACITENTAN
     Indication: PULMONARY ARTERIAL HYPERTENSION
     Dosage: 10 MG, QD
     Route: 048
     Dates: start: 20200102

REACTIONS (7)
  - Dyspnoea [Recovered/Resolved]
  - Pulmonary hypertension [Recovered/Resolved]
  - Nasal congestion [Unknown]
  - Therapy change [Unknown]
  - Diarrhoea [Unknown]
  - Headache [Unknown]
  - Peripheral swelling [Unknown]

NARRATIVE: CASE EVENT DATE: 20200305
